FAERS Safety Report 5804025-0 (Version None)
Quarter: 2008Q3

REPORT INFORMATION
  Report Type: 
  Country: None (occurrence: None)
  Receive Date: 20080707
  Receipt Date: 20080623
  Transmission Date: 20090109
  Serious: Yes (Hospitalization)
  Sender: FDA-Public Use
  Company Number: 2008S1010859

PATIENT
  Age: 77 Year
  Sex: Female

DRUGS (7)
  1. ATENOLOL [Suspect]
     Indication: DRUG USE FOR UNKNOWN INDICATION
     Dosage: 50 MG; DAILY
  2. DILTIAZEM [Suspect]
     Indication: DRUG USE FOR UNKNOWN INDICATION
     Dosage: 90 MG; TWICE A DAY
  3. AMITRIPTLINE HYDROCHLORIDE TAB [Concomitant]
  4. ASPIRIN [Concomitant]
  5. BEZAFIBRATE (BEZAFIBRATE) [Concomitant]
  6. OMEPRAZOLE [Concomitant]
  7. RAMIPRIL [Concomitant]

REACTIONS (7)
  - BLOOD CREATININE INCREASED [None]
  - BRADYCARDIA [None]
  - FALL [None]
  - PALPITATIONS [None]
  - SINUS ARRHYTHMIA [None]
  - SINUS DISORDER [None]
  - SYNCOPE [None]
